FAERS Safety Report 5969157-5 (Version None)
Quarter: 2008Q4

REPORT INFORMATION
  Report Type: 
  Country: None (occurrence: None)
  Receive Date: 20081126
  Receipt Date: 20081117
  Transmission Date: 20090506
  Serious: Yes (Other)
  Sender: FDA-Public Use
  Company Number: JP-WATSON-2008-06796

PATIENT
  Age: 36 Year
  Sex: Female

DRUGS (2)
  1. TAMOXIFEN CITRATE (WATSON LABORATORIES) [Suspect]
     Indication: BREAST CANCER RECURRENT
     Dosage: UNK
     Dates: start: 20040101, end: 20060701
  2. GONADOTROPHIN RELEASING HORMONE ANALOGUES [Suspect]
     Indication: BREAST CANCER
     Dosage: UNK
     Dates: start: 20040101, end: 20060701

REACTIONS (1)
  - ACUTE PROMYELOCYTIC LEUKAEMIA [None]
